FAERS Safety Report 7208362-7 (Version None)
Quarter: 2010Q4

REPORT INFORMATION
  Report Type: 
  Country: None (occurrence: None)
  Receive Date: 20101126
  Receipt Date: 20100914
  Transmission Date: 20110411
  Serious: Yes (Hospitalization, Other)
  Sender: FDA-Public Use
  Company Number: 311828

PATIENT
  Age: 58 Year
  Sex: Female
  Weight: 106.8 kg

DRUGS (10)
  1. VICTOZA [Suspect]
     Indication: TYPE 2 DIABETES MELLITUS
     Dosage: 1.8 MG, QD, SUBCUTANEOUS
     Route: 058
     Dates: start: 20100504, end: 20100715
  2. LANTUS [Concomitant]
  3. METFORMIN HCL [Concomitant]
  4. ACTOS [Concomitant]
  5. LIPITOR [Concomitant]
  6. LISINOPRIL [Concomitant]
  7. ASPIRIN [Concomitant]
  8. PROTONIX [Concomitant]
  9. ISOSORBIDE (ISOSORBIDE) [Concomitant]
  10. METOPROLOL SUCCINATE [Concomitant]

REACTIONS (1)
  - PANCREATITIS ACUTE [None]
